FAERS Safety Report 17818204 (Version 1)
Quarter: 2020Q2

REPORT INFORMATION
  Report Type: Spontaneous
  Country: US (occurrence: US)
  Receive Date: 20200522
  Receipt Date: 20200522
  Transmission Date: 20200714
  Serious: No
  Sender: FDA-Public Use
  Company Number: US-TEVA-2020-US-1239633

PATIENT
  Sex: Female

DRUGS (2)
  1. FAMOTIDINE TEVA [Suspect]
     Active Substance: FAMOTIDINE
     Dosage: MORNING AND BEFORE BED
     Route: 065
     Dates: start: 201912
  2. FAMOTIDINE TEVA [Suspect]
     Active Substance: FAMOTIDINE
     Route: 065
     Dates: start: 202003

REACTIONS (1)
  - Upper-airway cough syndrome [Unknown]
